FAERS Safety Report 13826408 (Version 1)
Quarter: 2017Q3

REPORT INFORMATION
  Report Type: Spontaneous
  Country: US (occurrence: US)
  Receive Date: 20170802
  Receipt Date: 20170802
  Transmission Date: 20171127
  Serious: No
  Sender: FDA-Public Use
  Company Number: US-TEIKOKU PHARMA USA-TPU2017-00283

PATIENT
  Sex: Female
  Weight: 68.1 kg

DRUGS (23)
  1. ASPIRIN. [Concomitant]
     Active Substance: ASPIRIN
     Indication: HEADACHE
  2. ZANAFLEX [Concomitant]
     Active Substance: TIZANIDINE HYDROCHLORIDE
     Indication: MUSCLE SPASMS
     Route: 048
  3. ASPIRIN. [Concomitant]
     Active Substance: ASPIRIN
     Indication: PAIN
     Dosage: 1-2 TABLETS BY MOUTH, 2 TIMES PER DAY AS NEEDED, 325 MG TABLET.
  4. GABAPENTIN. [Concomitant]
     Active Substance: GABAPENTIN
     Indication: PAIN
  5. GLUCOSAMINE [Concomitant]
     Active Substance: GLUCOSAMINE
     Indication: PAIN
  6. MECLIZINE [Concomitant]
     Active Substance: MECLIZINE HYDROCHLORIDE
     Indication: DIZZINESS
  7. ZOCOR [Concomitant]
     Active Substance: SIMVASTATIN
     Route: 048
  8. RESTASIS [Concomitant]
     Active Substance: CYCLOSPORINE
     Dosage: 1 DROP IN EACH EYE
     Route: 031
  9. OTC GAVISCON EXTRA STRENGTH [Concomitant]
     Indication: BARRETT^S OESOPHAGUS
  10. LISINOPRIL-HCTZ [Concomitant]
     Active Substance: HYDROCHLOROTHIAZIDE\LISINOPRIL
     Dosage: 10-5MG
     Route: 048
  11. ROBAXIN [Concomitant]
     Active Substance: METHOCARBAMOL
     Indication: MUSCLE SPASMS
     Route: 048
  12. OTC THERAPEUTIC MULTIVITAMIN [Concomitant]
     Indication: GENERAL PHYSICAL CONDITION
  13. ALPRAZOLAM. [Concomitant]
     Active Substance: ALPRAZOLAM
     Indication: ANXIETY
  14. EVOXAC [Concomitant]
     Active Substance: CEVIMELINE HYDROCHLORIDE
     Indication: APTYALISM
  15. OMEGA 3 OTC [Concomitant]
     Route: 048
  16. LIDOCAINE PATCH [Suspect]
     Active Substance: LIDOCAINE
     Indication: PAIN
     Route: 061
  17. GLUCOSAMINE-CHONDROITIN-MSM [Concomitant]
     Indication: PAIN
     Dosage: 500-200-150 MG TABLETS, TAKE 1 BY MOUTH, DAILY
     Route: 048
  18. OMEPRAZOLE. [Concomitant]
     Active Substance: OMEPRAZOLE
     Indication: BARRETT^S OESOPHAGUS
     Route: 048
  19. VITAMIN D [Concomitant]
     Active Substance: CHOLECALCIFEROL
     Indication: VITAMIN D DEFICIENCY
  20. LIDOCAINE. [Concomitant]
     Active Substance: LIDOCAINE
     Indication: PAIN
     Dosage: SPEARMINT FLAVOR
     Route: 048
  21. CYANOCOBALAMIN. [Concomitant]
     Active Substance: CYANOCOBALAMIN
     Indication: DEPRESSION
     Route: 060
  22. LORATADINE. [Concomitant]
     Active Substance: LORATADINE
     Indication: DUST ALLERGY
     Route: 048
  23. EFFEXOR XR EXTENDED-RELEASE [Concomitant]
     Active Substance: VENLAFAXINE HYDROCHLORIDE
     Indication: INTRACRANIAL ANEURYSM
     Dosage: 3 CAPSULES EVERY EVENING
     Route: 048

REACTIONS (2)
  - Animal bite [Unknown]
  - Amnesia [Not Recovered/Not Resolved]
